FAERS Safety Report 5044095-3 (Version None)
Quarter: 2006Q3

REPORT INFORMATION
  Report Type: 
  Country: None (occurrence: None)
  Receive Date: 20060706
  Receipt Date: 20060626
  Transmission Date: 20061208
  Serious: Yes (Other)
  Sender: FDA-Public Use
  Company Number: US-JNJFOC-20060502173

PATIENT
  Sex: Female

DRUGS (9)
  1. REMICADE [Suspect]
     Route: 042
  2. REMICADE [Suspect]
     Route: 042
  3. REMICADE [Suspect]
     Route: 042
  4. REMICADE [Suspect]
     Indication: CROHN'S DISEASE
     Route: 042
  5. TYLENOL (CAPLET) [Concomitant]
     Indication: PREMEDICATION
  6. ALLEGRA [Concomitant]
     Indication: PREMEDICATION
  7. PREDNISONE TAB [Concomitant]
  8. SOLU-CORTEF [Concomitant]
  9. BENADRYL [Concomitant]

REACTIONS (6)
  - HYPOAESTHESIA [None]
  - INFUSION RELATED REACTION [None]
  - PARAESTHESIA [None]
  - PRURITUS [None]
  - RASH [None]
  - TONGUE DISORDER [None]
